FAERS Safety Report 5026105-2 (Version None)
Quarter: 2006Q2

REPORT INFORMATION
  Report Type: 
  Country: None (occurrence: None)
  Receive Date: 20060612
  Receipt Date: 20060612
  Transmission Date: 20061013
  Serious: Yes (Life-Threatening, Hospitalization)
  Sender: FDA-Public Use
  Company Number: None

PATIENT
  Age: 81 Year
  Sex: Male
  Weight: 61.7 kg

DRUGS (2)
  1. MORPHINE [Suspect]
     Indication: PAIN
     Dosage: 5 MG Q1H PRN IV BOLUS
     Route: 040
     Dates: start: 20060607, end: 20060609
  2. ATIVAN [Suspect]
     Indication: AGITATION
     Dosage: 1 MG Q4GH PRN IV BOLUS
     Route: 040
     Dates: start: 20060607, end: 20060609

REACTIONS (3)
  - ACUTE MYOCARDIAL INFARCTION [None]
  - ASPIRATION [None]
  - HYPOTENSION [None]
